FAERS Safety Report 8142606-2 (Version None)
Quarter: 2012Q1

REPORT INFORMATION
  Report Type: 
  Country: None (occurrence: None)
  Receive Date: 20120216
  Receipt Date: 20120208
  Transmission Date: 20120608
  Serious: Yes (Other)
  Sender: FDA-Public Use
  Company Number: IE-ASTRAZENECA-2012SE07088

PATIENT
  Age: 76 Year
  Sex: Female

DRUGS (7)
  1. VIMOVO [Suspect]
     Indication: ANALGESIC THERAPY
     Dosage: 500/20 BD
     Route: 048
     Dates: start: 20111212, end: 20111220
  2. COZAAR [Concomitant]
     Indication: HYPERTENSION
     Route: 048
  3. VIMOVO [Suspect]
     Indication: ANTIINFLAMMATORY THERAPY
     Dosage: 500/20 BD
     Route: 048
     Dates: start: 20111212, end: 20111220
  4. ACULODE [Concomitant]
     Indication: HYPERTENSION
     Route: 048
  5. ACETAMINOPHEN W/ CODEINE [Concomitant]
     Indication: OSTEOARTHRITIS
     Route: 048
  6. DIFENAC GEL [Concomitant]
     Indication: OSTEOARTHRITIS
     Route: 048
  7. CARDURA [Concomitant]
     Indication: HYPERTENSION
     Route: 048

REACTIONS (5)
  - SWELLING FACE [None]
  - RASH [None]
  - CHEST DISCOMFORT [None]
  - FLUID RETENTION [None]
  - DYSPNOEA [None]
